FAERS Safety Report 7598532-0 (Version None)
Quarter: 2011Q3

REPORT INFORMATION
  Report Type: 
  Country: None (occurrence: None)
  Receive Date: 20110708
  Receipt Date: 20110629
  Transmission Date: 20111222
  Serious: Yes (Hospitalization, Other)
  Sender: FDA-Public Use
  Company Number: US-ELI_LILLY_AND_COMPANY-US201001003380

PATIENT
  Sex: Male

DRUGS (20)
  1. ALBUTEROL SULFATE AUTOHALER [Concomitant]
     Dosage: UNK
  2. HYDROCHLOROTHIAZIDE [Concomitant]
     Dosage: 25 MG, BID
  3. BYETTA [Suspect]
     Dosage: UNK, UNKNOWN
     Route: 065
     Dates: start: 20061101
  4. SOMA [Concomitant]
     Dosage: 350 MG, BID
  5. OMEPRAZOLE [Concomitant]
     Dosage: 20 MG, QD
  6. GABITRIL [Concomitant]
     Dosage: 4 MG, QD
  7. ALLOPURINOL [Concomitant]
     Dosage: 100 MG, QD
  8. PERCOCET [Concomitant]
     Dosage: UNK
  9. CREON [Concomitant]
  10. PROZAC [Concomitant]
     Dosage: 40 MG, QD
  11. CRESTOR [Concomitant]
     Dosage: 10 MG, QD
  12. XANAX [Concomitant]
     Dosage: 0.5 MG, QID
  13. METFORMIN HCL [Concomitant]
     Dosage: 1000 MG, BID
  14. FLOVENT [Concomitant]
  15. GLIPIZIDE [Concomitant]
     Dosage: 20 MG, QD
  16. NITROGLYCERIN [Concomitant]
     Route: 060
  17. PLAVIX [Concomitant]
     Dosage: 75 MG, QD
  18. SINGULAIR [Concomitant]
     Dosage: 10 MG, QD
  19. LISINOPRIL [Concomitant]
     Dosage: 20 MG, QD
  20. ASPIRIN [Concomitant]
     Dosage: 325 MG, QD

REACTIONS (3)
  - PANCREATITIS ACUTE [None]
  - PANCREATITIS CHRONIC [None]
  - ALCOHOLIC PANCREATITIS [None]
